FAERS Safety Report 15982808 (Version 1)
Quarter: 2019Q1

REPORT INFORMATION
  Report Type: Report from Study
  Country: US (occurrence: US)
  Receive Date: 20190219
  Receipt Date: 20190219
  Transmission Date: 20190418
  Serious: Yes (Death)
  Sender: FDA-Public Use
  Company Number: US-ACTELION-A-US2018-177535

PATIENT
  Age: 61 Year
  Sex: Male
  Weight: 77.55 kg

DRUGS (3)
  1. HYDROXYCHLOROQUINE [Concomitant]
     Active Substance: HYDROXYCHLOROQUINE
     Indication: SJOGREN^S SYNDROME
     Dosage: 200 MG, BID
  2. ADEMPAS [Concomitant]
     Active Substance: RIOCIGUAT
  3. OPSUMIT [Suspect]
     Active Substance: MACITENTAN
     Indication: PULMONARY ARTERIAL HYPERTENSION
     Dosage: 10 MG, QD
     Route: 048

REACTIONS (13)
  - Sjogren^s syndrome [Unknown]
  - Epistaxis [Unknown]
  - Dyspnoea exertional [Unknown]
  - Hypotension [Unknown]
  - Eating disorder [Unknown]
  - Loss of consciousness [Unknown]
  - Blood glucose decreased [Unknown]
  - Nasal injury [Unknown]
  - Malaise [Unknown]
  - Death [Fatal]
  - Depression [Unknown]
  - Peripheral swelling [Unknown]
  - Syncope [Unknown]

NARRATIVE: CASE EVENT DATE: 201807
